FAERS Safety Report 5520335-9 (Version None)
Quarter: 2007Q4

REPORT INFORMATION
  Report Type: 
  Country: None (occurrence: None)
  Receive Date: 20071119
  Receipt Date: 20071113
  Transmission Date: 20080405
  Serious: Yes (Hospitalization)
  Sender: FDA-Public Use
  Company Number: FR-JNJFOC-20071103999

PATIENT
  Sex: Male

DRUGS (6)
  1. RISPERDAL [Suspect]
     Indication: SCHIZOTYPAL PERSONALITY DISORDER
     Route: 048
  2. LOXAPAC [Suspect]
     Indication: DRUG USE FOR UNKNOWN INDICATION
  3. VALIUM [Concomitant]
  4. EQUANIL [Concomitant]
  5. TILDIEM [Concomitant]
  6. PARKINANE [Concomitant]

REACTIONS (6)
  - BLOOD CREATINE PHOSPHOKINASE INCREASED [None]
  - HEADACHE [None]
  - MOTOR DYSFUNCTION [None]
  - MYALGIA [None]
  - NECK PAIN [None]
  - PROTEINURIA [None]
